FAERS Safety Report 4434088-9 (Version None)
Quarter: 2004Q3

REPORT INFORMATION
  Report Type: 
  Country: None (occurrence: None)
  Receive Date: 20040825
  Receipt Date: 20040810
  Transmission Date: 20050211
  Serious: No
  Sender: FDA-Public Use
  Company Number: DSA_80703_2004

PATIENT
  Age: 80 Year
  Sex: Male

DRUGS (2)
  1. XYREM [Suspect]
     Indication: NARCOLEPSY
     Dosage: 4.5 G NIGHTLY PO
     Route: 048
     Dates: start: 20031101, end: 20031201
  2. MIRAPEX [Concomitant]

REACTIONS (3)
  - ANXIETY [None]
  - EXTRASYSTOLES [None]
  - PALPITATIONS [None]
